FAERS Safety Report 15588407 (Version 1)
Quarter: 2018Q4

REPORT INFORMATION
  Report Type: Other
  Country: US (occurrence: US)
  Receive Date: 20181105
  Receipt Date: 20181105
  Transmission Date: 20190205
  Serious: Yes (Hospitalization)
  Sender: FDA-Public Use
  Company Number: US-PRINSTON PHARMACEUTICAL INC.-2018PRN01148

PATIENT
  Age: 80 Year
  Sex: Female
  Weight: 113.38 kg

DRUGS (2)
  1. SYNTHROID [Concomitant]
     Active Substance: LEVOTHYROXINE SODIUM
  2. VALSARTAN. [Suspect]
     Active Substance: VALSARTAN
     Indication: HYPERTENSION
     Dosage: 80 MG, 2X/DAY
     Route: 048
     Dates: start: 20180227, end: 20180724

REACTIONS (9)
  - Abdominal distension [Recovered/Resolved]
  - Product substitution issue [Recovered/Resolved]
  - Transient ischaemic attack [Recovered/Resolved]
  - Back pain [Recovered/Resolved]
  - Skin discolouration [Recovering/Resolving]
  - Hallucination [Recovered/Resolved]
  - Malaise [Recovered/Resolved]
  - Peripheral swelling [Recovering/Resolving]
  - Hypertension [Recovered/Resolved]

NARRATIVE: CASE EVENT DATE: 2018
